FAERS Safety Report 5054344-3 (Version None)
Quarter: 2006Q2

REPORT INFORMATION
  Report Type: 
  Country: None (occurrence: None)
  Receive Date: 20060616
  Receipt Date: 20060414
  Transmission Date: 20061013
  Serious: No
  Sender: FDA-Public Use
  Company Number: 224147

PATIENT
  Age: 43 Year
  Sex: Male

DRUGS (2)
  1. AVASTIN [Suspect]
     Indication: NON-SMALL CELL LUNG CANCER
     Dosage: 1350 MG, Q3W, INTRAVENOUS
     Route: 042
     Dates: start: 20050809
  2. MANNATECH LIFE ENHANCEMENT PACKETS (HERBAL,HOMEOPATHIC,+ DIETARY SUPPL [Concomitant]

REACTIONS (1)
  - GYNAECOMASTIA [None]
